FAERS Safety Report 22662847 (Version 3)
Quarter: 2024Q1

REPORT INFORMATION
  Report Type: Report from Study
  Country: US (occurrence: US)
  Receive Date: 20230702
  Receipt Date: 20240209
  Transmission Date: 20240410
  Serious: Yes (Death, Hospitalization)
  Sender: FDA-Public Use
  Company Number: US-ABBVIE-5304632

PATIENT
  Sex: Male
  Weight: 73 kg

DRUGS (9)
  1. VENCLEXTA [Suspect]
     Active Substance: VENETOCLAX
     Indication: Myelodysplastic syndrome
     Dosage: FORM STRENGTH: 100 MILLIGRAM?TAKE 1 TABLET (100 MG TOTAL) BY MOUTH DAILY WITH BREAKFAST.
     Route: 048
     Dates: start: 20221110
  2. VENCLEXTA [Suspect]
     Active Substance: VENETOCLAX
     Indication: Myelodysplastic syndrome
     Dosage: TAKE 1 TABLET (100 MG TOTAL) BY MOUTH DAILY WITH BREAKFAST.?FORM STRENGTH 100 MILLIGRAM
     Route: 048
  3. SHINGRIX [Concomitant]
     Active Substance: RECOMBINANT VARICELLA ZOSTER VIRUS (VZV) GLYCOPROTEIN E
     Indication: Product used for unknown indication
     Dosage: REPEAT IN 2 TO 6 MONTHS
     Route: 030
     Dates: start: 2023
  4. TRIAMCINOLONE ACETONIDE [Concomitant]
     Active Substance: TRIAMCINOLONE ACETONIDE
     Indication: Product used for unknown indication
     Dosage: 40 MG/ML INJ 40 MG?FREQUENCY TEXT: ONCE
     Route: 014
  5. LACOSAMIDE [Concomitant]
     Active Substance: LACOSAMIDE
     Indication: Product used for unknown indication
     Dosage: TAKE 1 TABLET (100 MG TOTAL) BY MOUTH TWO (2) TIMES DAILY?100 MILLIGRAMS?FORM STRENGTH: 100 MILLI...
     Route: 048
  6. OXCARBAZEPINE [Concomitant]
     Active Substance: OXCARBAZEPINE
     Indication: Product used for unknown indication
     Dosage: TAKE 1 TABLET (300 MG TOTAL) BY MOUTH TWO (2) TIMES DAILY?FORM STRENGTH: 300 MILLIGRAM
     Route: 048
  7. LEVETIRACETAM [Concomitant]
     Active Substance: LEVETIRACETAM
     Indication: Product used for unknown indication
     Dosage: TAKE 2 TABLETS (2,000 MG TOTAL) BY MOUTH TWO (2) TIMES DAILY?FORM STRENGTH: 1000 MILLIGRAM
     Route: 048
  8. BUPIVACAINE [Concomitant]
     Active Substance: BUPIVACAINE
     Indication: Product used for unknown indication
     Dosage: 0.25% INJ 5 MG 2 ML?FREQUENCY TEXT: ONCE
     Route: 014
  9. LIDOCAINE [Concomitant]
     Active Substance: LIDOCAINE
     Indication: Product used for unknown indication
     Dosage: 1% INJ 2 ML, 2 ML?LIDOCAINE PF ?ONCE
     Route: 014

REACTIONS (5)
  - Death [Fatal]
  - Off label use [Unknown]
  - Off label use [Unknown]
  - Myelodysplastic syndrome [Unknown]
  - Hospitalisation [Unknown]
